FAERS Safety Report 7847254-7 (Version None)
Quarter: 2011Q4

REPORT INFORMATION
  Report Type: 
  Country: None (occurrence: None)
  Receive Date: 20111025
  Receipt Date: 20111020
  Transmission Date: 20120403
  Serious: Yes (Hospitalization)
  Sender: FDA-Public Use
  Company Number: US-AMGEN-USASP2011054506

PATIENT
  Age: 56 Year
  Sex: Male

DRUGS (6)
  1. XGEVA [Suspect]
     Indication: PRODUCT USED FOR UNKNOWN INDICATION
     Dosage: UNK
     Dates: start: 20110901
  2. ATORVASTATIN [Concomitant]
     Dosage: UNK
  3. VANCOMYCIN HCL [Concomitant]
     Dates: start: 20110901
  4. PIPERACILLIN AND TAZOBACTAM [Concomitant]
     Dates: start: 20110901
  5. LEVOFLOXACIN [Concomitant]
     Dates: start: 20110901
  6. DILAUDID [Concomitant]
     Dates: start: 20110901

REACTIONS (2)
  - HYPOXIA [None]
  - LUNG INFILTRATION [None]
